FAERS Safety Report 24530605 (Version 2)
Quarter: 2024Q4

REPORT INFORMATION
  Report Type: Spontaneous
  Country: GB (occurrence: GB)
  Receive Date: 20241021
  Receipt Date: 20241121
  Transmission Date: 20250115
  Serious: Yes (Hospitalization)
  Sender: MYLAN
  Company Number: GB-MYLANLABS-2024M1094148

PATIENT
  Sex: Male

DRUGS (2)
  1. CLOZARIL [Suspect]
     Active Substance: CLOZAPINE
     Indication: Schizophrenia
     Dosage: UNK
     Route: 048
     Dates: start: 20230404, end: 20240930
  2. CLOZAPINE [Concomitant]
     Active Substance: CLOZAPINE
     Dosage: UNK
     Route: 065

REACTIONS (4)
  - Schizophrenia [Unknown]
  - Infection [Unknown]
  - Constipation [Unknown]
  - Malaise [Unknown]
